FAERS Safety Report 13449622 (Version 2)
Quarter: 2017Q2

REPORT INFORMATION
  Report Type: Spontaneous
  Country: US (occurrence: US)
  Receive Date: 20170417
  Receipt Date: 20170627
  Transmission Date: 20170830
  Serious: Yes (Hospitalization)
  Sender: FDA-Public Use
  Company Number: US-ACTELION-A-US2017-152610

PATIENT
  Age: 49 Year
  Sex: Female

DRUGS (6)
  1. OPSUMIT [Suspect]
     Active Substance: MACITENTAN
     Indication: PULMONARY ARTERIAL HYPERTENSION
     Dosage: 10 MG, UNK
     Route: 048
     Dates: start: 20151211
  2. NOVOLOG [Concomitant]
     Active Substance: INSULIN ASPART
  3. LANTUS [Concomitant]
     Active Substance: INSULIN GLARGINE
  4. LISINOPRIL. [Concomitant]
     Active Substance: LISINOPRIL
  5. ADALAT [Concomitant]
     Active Substance: NIFEDIPINE
  6. ADCIRCA [Concomitant]
     Active Substance: TADALAFIL
     Dosage: 40 MG, QD
     Route: 048

REACTIONS (3)
  - Blood glucose increased [Recovering/Resolving]
  - Diabetes mellitus [Recovering/Resolving]
  - Diarrhoea [Not Recovered/Not Resolved]

NARRATIVE: CASE EVENT DATE: 20161215
